FAERS Safety Report 18869412 (Version 1)
Quarter: 2021Q1

REPORT INFORMATION
  Report Type: Spontaneous
  Country: FR (occurrence: FR)
  Receive Date: 20210210
  Receipt Date: 20210210
  Transmission Date: 20210420
  Serious: Yes (Hospitalization)
  Sender: FDA-Public Use
  Company Number: FR-AUROBINDO-AUR-APL-2021-005029

PATIENT
  Age: 42 Year
  Sex: Female
  Weight: 47 kg

DRUGS (3)
  1. TERCIAN [Suspect]
     Active Substance: CYAMEMAZINE
     Indication: ANXIETY
     Dosage: UNK
     Route: 048
     Dates: start: 20201117, end: 20201119
  2. OLANZAPINE. [Suspect]
     Active Substance: OLANZAPINE
     Indication: ANXIETY
     Dosage: 10 MILLIGRAM, EVERY WEEK
     Route: 048
     Dates: start: 20201117, end: 20201118
  3. LOXAPAC [Suspect]
     Active Substance: LOXAPINE
     Indication: ANXIETY
     Dosage: UNK
     Route: 048
     Dates: start: 20201117, end: 20201118

REACTIONS (1)
  - Lymphopenia [Recovering/Resolving]

NARRATIVE: CASE EVENT DATE: 20201117
